FAERS Safety Report 14816778 (Version 2)
Quarter: 2018Q3

REPORT INFORMATION
  Report Type: Report from Study
  Country: None (occurrence: BR)
  Receive Date: 20180426
  Receipt Date: 20180823
  Transmission Date: 20181010
  Serious: Yes (Hospitalization, Disabling, Other)
  Sender: FDA-Public Use
  Company Number: BR-ABBVIE-18P-020-2306897-00

PATIENT
  Age: 79 Year
  Sex: Male
  Weight: 58.4 kg

DRUGS (61)
  1. VENETOCLAX. [Suspect]
     Active Substance: VENETOCLAX
     Indication: ACUTE MYELOID LEUKAEMIA
     Route: 048
     Dates: start: 20180307, end: 20180307
  2. CEPHEPIME [Concomitant]
     Indication: FEBRILE NEUTROPENIA
     Route: 040
     Dates: start: 20180307
  3. NORMAL SALINE [Concomitant]
     Active Substance: SODIUM CHLORIDE
     Indication: PROPHYLAXIS
     Dates: start: 20180306, end: 20180308
  4. NORMAL SALINE [Concomitant]
     Active Substance: SODIUM CHLORIDE
     Dates: start: 20180311, end: 20180313
  5. NORMAL SALINE [Concomitant]
     Active Substance: SODIUM CHLORIDE
     Dates: start: 20180328, end: 20180328
  6. NORMAL SALINE [Concomitant]
     Active Substance: SODIUM CHLORIDE
     Dates: start: 20180530, end: 20180531
  7. NORMAL SALINE [Concomitant]
     Active Substance: SODIUM CHLORIDE
     Dates: start: 20180603, end: 20180604
  8. DEXTROSE 5% [Concomitant]
     Active Substance: DEXTROSE
     Indication: TUMOUR LYSIS SYNDROME
  9. BISOPROLOL [Concomitant]
     Active Substance: BISOPROLOL
     Route: 048
     Dates: start: 20180308, end: 20180309
  10. BISOPROLOL [Concomitant]
     Active Substance: BISOPROLOL
     Route: 048
     Dates: start: 20180310
  11. ALLOPURINOL. [Concomitant]
     Active Substance: ALLOPURINOL
     Indication: PROPHYLAXIS
     Route: 048
     Dates: start: 20180305, end: 20180420
  12. DIPYRONE [Concomitant]
     Active Substance: DIPYRONE
     Indication: PRODUCT USED FOR UNKNOWN INDICATION
     Route: 042
     Dates: start: 20180329, end: 20180329
  13. NORMAL SALINE [Concomitant]
     Active Substance: SODIUM CHLORIDE
     Dates: start: 20180529, end: 20180530
  14. DIPHENHYDRAMINE HYDROCHLORIDE. [Concomitant]
     Active Substance: DIPHENHYDRAMINE HYDROCHLORIDE
     Indication: ALLERGY PROPHYLAXIS
     Route: 042
     Dates: start: 20180310
  15. VENETOCLAX. [Suspect]
     Active Substance: VENETOCLAX
     Route: 048
     Dates: start: 20180309, end: 20180402
  16. FLUCONAZOL [Concomitant]
     Active Substance: FLUCONAZOLE
     Indication: ANTIFUNGAL PROPHYLAXIS
     Route: 048
     Dates: start: 20180221, end: 20180226
  17. HIDROCORTISONE [Concomitant]
     Active Substance: HYDROCORTISONE
     Indication: DYSPNOEA
     Route: 042
     Dates: start: 20180221, end: 20180221
  18. HIDROXYUREA [Concomitant]
     Route: 048
     Dates: start: 20180224, end: 20180224
  19. NORMAL SALINE [Concomitant]
     Active Substance: SODIUM CHLORIDE
     Indication: TUMOUR LYSIS SYNDROME
     Dosage: ADD 10 ML OF 10% CALCIUM GLUCONATE
     Dates: start: 20180209, end: 20180211
  20. GLUCOSE 50% [Concomitant]
     Active Substance: DEXTROSE
     Indication: PROPHYLAXIS
  21. CRESTOR [Concomitant]
     Active Substance: ROSUVASTATIN CALCIUM
     Indication: HYPERLIPIDAEMIA
     Route: 048
     Dates: start: 2017
  22. OMEPRAZOLE. [Concomitant]
     Active Substance: OMEPRAZOLE
     Indication: GASTRITIS PROPHYLAXIS
     Route: 042
     Dates: start: 20180328, end: 20180425
  23. ENALAPRIL [Concomitant]
     Active Substance: ENALAPRIL
     Indication: PRODUCT USED FOR UNKNOWN INDICATION
     Route: 048
     Dates: start: 20180328
  24. VITAMIN D [Concomitant]
     Active Substance: CHOLECALCIFEROL
     Indication: PRODUCT USED FOR UNKNOWN INDICATION
     Route: 048
     Dates: start: 20180401
  25. NORMAL SALINE [Concomitant]
     Active Substance: SODIUM CHLORIDE
     Dates: start: 20180510, end: 20180511
  26. VENETOCLAX. [Suspect]
     Active Substance: VENETOCLAX
     Route: 048
     Dates: start: 20180308, end: 20180308
  27. AZACITIDINE. [Suspect]
     Active Substance: AZACITIDINE
     Indication: ACUTE MYELOID LEUKAEMIA
     Dosage: DAYS 1?7 OF EACH 28?DAY CYCLE
     Route: 058
     Dates: start: 20180307, end: 20180313
  28. ASPIRIN. [Concomitant]
     Active Substance: ASPIRIN
     Indication: ISCHAEMIC HEART DISEASE PROPHYLAXIS
     Route: 048
     Dates: start: 20180305
  29. BISOPROLOL [Concomitant]
     Active Substance: BISOPROLOL
     Indication: CARDIOVASCULAR EVENT PROPHYLAXIS
     Route: 048
     Dates: start: 20180305, end: 20180307
  30. ONDANSETRONE [Concomitant]
     Active Substance: ONDANSETRON
     Indication: PROPHYLAXIS OF NAUSEA AND VOMITING
     Route: 042
     Dates: start: 20180305
  31. BROMOPRIDA [Concomitant]
     Indication: PROPHYLAXIS OF NAUSEA AND VOMITING
     Route: 042
     Dates: start: 20180309
  32. ISOSORBIDE. [Concomitant]
     Active Substance: ISOSORBIDE
     Route: 048
     Dates: start: 20180328
  33. HIDROXYUREA [Concomitant]
     Indication: ACUTE MYELOID LEUKAEMIA
     Route: 048
     Dates: start: 20180220, end: 20180223
  34. DEXTROSE 5% [Concomitant]
     Active Substance: DEXTROSE
     Indication: PROPHYLAXIS
  35. AZACITIDINE. [Suspect]
     Active Substance: AZACITIDINE
     Dosage: DAYS 1?7 OF EACH 28?DAY CYCLE
     Route: 058
     Dates: start: 20180430, end: 20180627
  36. SULFAMETHOXAZOLE AND TRIMETHOPRIM [Concomitant]
     Active Substance: SULFAMETHOXAZOLE\TRIMETHOPRIM
     Dosage: 400/80MG
     Route: 048
     Dates: start: 20180305
  37. FLUCONAZOL [Concomitant]
     Active Substance: FLUCONAZOLE
     Indication: ANTIFUNGAL PROPHYLAXIS
     Route: 048
     Dates: start: 20180305
  38. ACYCLOVIR. [Concomitant]
     Active Substance: ACYCLOVIR
     Indication: ANTIVIRAL PROPHYLAXIS
     Route: 048
     Dates: start: 20180220
  39. SALBUTAMOL [Concomitant]
     Active Substance: ALBUTEROL
     Indication: DYSPNOEA
     Route: 055
     Dates: start: 20180221, end: 20180221
  40. BROMETO DE IPATROPIO [Concomitant]
     Indication: DYSPNOEA
     Route: 055
     Dates: start: 20180307
  41. VANCOMICINA [Concomitant]
     Active Substance: VANCOMYCIN
     Indication: FEBRILE NEUTROPENIA
     Route: 042
     Dates: start: 20180307
  42. HIDROXYUREA [Concomitant]
     Route: 048
     Dates: start: 20180225
  43. NORMAL SALINE [Concomitant]
     Active Substance: SODIUM CHLORIDE
     Dates: start: 20180602, end: 20180602
  44. GLUCOSE 50% [Concomitant]
     Active Substance: DEXTROSE
     Indication: DEHYDRATION
  45. GLUCOSE 50% [Concomitant]
     Active Substance: DEXTROSE
     Indication: TUMOUR LYSIS SYNDROME
  46. DIPHENHYDRAMINE HYDROCHLORIDE. [Concomitant]
     Active Substance: DIPHENHYDRAMINE HYDROCHLORIDE
     Indication: TRANSFUSION
  47. VENETOCLAX. [Suspect]
     Active Substance: VENETOCLAX
     Route: 048
     Dates: start: 20180430
  48. SULFAMETHOXAZOLE AND TRIMETHOPRIM [Concomitant]
     Active Substance: SULFAMETHOXAZOLE\TRIMETHOPRIM
     Indication: ANTIBIOTIC PROPHYLAXIS
     Dosage: 400/80MG; BID 3X WEEKS
     Route: 048
     Dates: start: 20180219, end: 20180221
  49. ACYCLOVIR. [Concomitant]
     Active Substance: ACYCLOVIR
     Indication: ANTIFUNGAL PROPHYLAXIS
     Route: 048
     Dates: start: 20180305, end: 20180305
  50. BISOPROLOL [Concomitant]
     Active Substance: BISOPROLOL
     Indication: ISCHAEMIC HEART DISEASE PROPHYLAXIS
     Route: 048
     Dates: start: 20180224, end: 20180226
  51. HIDROCORTISONE [Concomitant]
     Active Substance: HYDROCORTISONE
     Route: 042
     Dates: start: 20180307
  52. ZOLPIDEM [Concomitant]
     Active Substance: ZOLPIDEM\ZOLPIDEM TARTRATE
     Indication: ROUTINE HEALTH MAINTENANCE
     Route: 048
     Dates: start: 20180220
  53. NORMAL SALINE [Concomitant]
     Active Substance: SODIUM CHLORIDE
     Indication: DEHYDRATION
     Dates: start: 20180220, end: 20180226
  54. DEXTROSE 5% [Concomitant]
     Active Substance: DEXTROSE
     Indication: DEHYDRATION
  55. AZACITIDINE. [Suspect]
     Active Substance: AZACITIDINE
     Dosage: DAYS 1?7 OF EACH 28?DAY CYCLE
     Route: 058
     Dates: start: 20180814
  56. FLUCONAZOL [Concomitant]
     Active Substance: FLUCONAZOLE
     Route: 042
  57. SALBUTAMOL [Concomitant]
     Active Substance: ALBUTEROL
     Route: 055
     Dates: start: 20180307
  58. FUROSEMIDA [Concomitant]
     Active Substance: FUROSEMIDE
     Indication: DYSPNOEA
     Route: 042
     Dates: start: 20180307
  59. ZOLPIDEM [Concomitant]
     Active Substance: ZOLPIDEM\ZOLPIDEM TARTRATE
     Indication: INSOMNIA
     Route: 048
     Dates: start: 20180305
  60. ISOSORBIDE. [Concomitant]
     Active Substance: ISOSORBIDE
     Indication: ISCHAEMIC HEART DISEASE PROPHYLAXIS
     Route: 060
     Dates: start: 20180309, end: 20180309
  61. ISOSORBIDE. [Concomitant]
     Active Substance: ISOSORBIDE
     Route: 048
     Dates: start: 20180309

REACTIONS (3)
  - Fungal infection [Not Recovered/Not Resolved]
  - Thrombocytopenia [Not Recovered/Not Resolved]
  - Anaemia [Not Recovered/Not Resolved]

NARRATIVE: CASE EVENT DATE: 20180328
